FAERS Safety Report 9162792 (Version 2)
Quarter: 2013Q3

REPORT INFORMATION
  Report Type: Spontaneous
  Country: US (occurrence: None)
  Receive Date: 20130222
  Receipt Date: 20130702
  Transmission Date: 20140515
  Serious: Yes (Other)
  Sender: FDA-Public Use
  Company Number: A1012586A

PATIENT
  Age: 88 Year
  Sex: Female
  Weight: 48.08 kg

DRUGS (1)
  1. METHYLCELLULOSE [Suspect]
     Dates: start: 20130214, end: 20130216

REACTIONS (1)
  - Rectal haemorrhage [None]
